FAERS Safety Report 9882170 (Version 1)
Quarter: 2014Q1

REPORT INFORMATION
  Report Type: Spontaneous
  Country: DE (occurrence: DE)
  Receive Date: 20140207
  Receipt Date: 20140207
  Transmission Date: 20141002
  Serious: Yes (Life-Threatening)
  Sender: FDA-Public Use
  Company Number: DE-WATSON-2014-01643

PATIENT
  Age: 81 Year
  Sex: Male

DRUGS (12)
  1. METFORMIN (UNKNOWN) [Suspect]
     Indication: TYPE 2 DIABETES MELLITUS
     Dosage: 2000 MG, DAILY
     Route: 048
     Dates: end: 20140120
  2. RAMIPRIL (UNKNOWN) [Suspect]
     Indication: HYPERTENSION
     Dosage: 5 MG, DAILY
     Route: 048
     Dates: end: 20140120
  3. XELEVIA [Suspect]
     Indication: TYPE 2 DIABETES MELLITUS
     Dosage: 100 MG, DAILY
     Route: 048
     Dates: end: 20140120
  4. TOREM /01036501/ [Suspect]
     Indication: HYPERTENSION
     Dosage: 10 MG, DAILY
     Route: 048
     Dates: end: 20140120
  5. HCT [Concomitant]
     Indication: HYPERTENSION
     Dosage: 25 MG, UNK
     Dates: end: 20140120
  6. FOLSAN [Concomitant]
     Indication: FOLATE DEFICIENCY
     Dosage: 5 MG, UNK
  7. METOHEXAL                          /00376902/ [Concomitant]
     Indication: TACHYCARDIA
     Dosage: 47.5 MG, DAILY
  8. KALINOR                            /00031402/ [Concomitant]
     Indication: HYPOKALAEMIA
     Dosage: UNK
     Dates: end: 20140120
  9. SIMVASTATIN [Concomitant]
     Indication: HYPERCHOLESTEROLAEMIA
     Dosage: 10 MG, UNK
  10. PROSTAGUTT FORTE [Concomitant]
     Indication: BENIGN PROSTATIC HYPERPLASIA
     Dosage: 1 DF, DAILY
  11. ASS [Concomitant]
     Indication: CORONARY ARTERY DISEASE
     Dosage: 100 MG, UNK
  12. NOVALGIN                           /06276704/ [Concomitant]
     Indication: PAIN
     Dosage: UNK

REACTIONS (3)
  - Lactic acidosis [Not Recovered/Not Resolved]
  - Hypoglycaemia [Not Recovered/Not Resolved]
  - Renal failure acute [Not Recovered/Not Resolved]
